FAERS Safety Report 6272511-8 (Version None)
Quarter: 2009Q3

REPORT INFORMATION
  Report Type: 
  Country: None (occurrence: None)
  Receive Date: 20090717
  Receipt Date: 20090706
  Transmission Date: 20100115
  Serious: Yes (Hospitalization, Other)
  Sender: FDA-Public Use
  Company Number: JP-PFIZER INC-2009241407

PATIENT
  Age: 67 Year

DRUGS (5)
  1. LIPITOR [Suspect]
     Indication: HYPERCHOLESTEROLAEMIA
     Dosage: 5 MG, UNK/D
     Route: 048
  2. MICARDIS [Concomitant]
     Dosage: UNK
     Dates: end: 20090105
  3. AMARYL [Concomitant]
     Dosage: UNK
     Route: 048
  4. BUFFERIN [Concomitant]
     Dosage: UNK
     Route: 048
  5. BUFFERIN [Concomitant]
     Dosage: UNK
     Route: 048

REACTIONS (3)
  - BLOOD PRESSURE DECREASED [None]
  - LARGE INTESTINE CARCINOMA [None]
  - MELAENA [None]
